FAERS Safety Report 22287642 (Version 2)
Quarter: 2023Q4

REPORT INFORMATION
  Report Type: Other
  Country: AU (occurrence: AU)
  Receive Date: 20230505
  Receipt Date: 20231024
  Transmission Date: 20240109
  Serious: Yes (Other)
  Sender: FDA-Public Use
  Company Number: AU-TOLMAR, INC.-23AU040315

PATIENT
  Sex: Male

DRUGS (1)
  1. ELIGARD [Suspect]
     Active Substance: LEUPROLIDE ACETATE
     Indication: Prostate cancer
     Dosage: 22.5 MILLIGRAM, Q 3 MONTH

REACTIONS (7)
  - Spinal cord neoplasm [Unknown]
  - Injection site erythema [Unknown]
  - Injection site pain [Unknown]
  - Muscle atrophy [Unknown]
  - Alopecia [Unknown]
  - Fatigue [Unknown]
  - Hot flush [Not Recovered/Not Resolved]
